FAERS Safety Report 9033460 (Version 1)
Quarter: 2013Q1

REPORT INFORMATION
  Report Type: Spontaneous
  Country: CA (occurrence: CA)
  Receive Date: 20130128
  Receipt Date: 20130128
  Transmission Date: 20140127
  Serious: Yes (Death, Hospitalization, Other)
  Sender: FDA-Public Use
  Company Number: CA-AMGEN-CANSP2011041894

PATIENT
  Age: 80 Year
  Sex: Female

DRUGS (1)
  1. SENSIPAR [Suspect]
     Indication: HYPERPARATHYROIDISM SECONDARY
     Dosage: 60 MG, QD
     Route: 048
     Dates: start: 20091027, end: 20110801

REACTIONS (5)
  - Hospitalisation [Unknown]
  - Death [Fatal]
  - Cardiac disorder [Unknown]
  - Clostridium difficile infection [Recovered/Resolved]
  - Intervertebral discitis [Unknown]
